FAERS Safety Report 26084402 (Version 1)
Quarter: 2025Q4

REPORT INFORMATION
  Report Type: Spontaneous
  Country: EU (occurrence: EU)
  Receive Date: 20251124
  Receipt Date: 20251124
  Transmission Date: 20260117
  Serious: Yes (Death)
  Sender: ABBVIE
  Company Number: None

PATIENT
  Age: 81 Year

DRUGS (6)
  1. CIPRALEX [Suspect]
     Active Substance: ESCITALOPRAM OXALATE
     Indication: Depression
     Dosage: 10 MG X 1?CONTINUED USE OF MEDICINAL PRODUCT, ?STRENGTH: 10 MG
     Route: 048
  2. DUTASTERIDE\TAMSULOSIN [Concomitant]
     Active Substance: DUTASTERIDE\TAMSULOSIN
     Indication: Benign prostatic hyperplasia
     Dosage: 1 X 1?CONTINUED USE OF MEDICINAL PRODUCT
  3. LIVOSTIN [Concomitant]
     Active Substance: LEVOCABASTINE HYDROCHLORIDE
     Indication: Hypersensitivity
     Dosage: 1 DROP X 2CONTINUED USE OF MEDICINAL PRODUCT
  4. PRADAXA [Interacting]
     Active Substance: DABIGATRAN ETEXILATE MESYLATE
     Indication: Atrial fibrillation
     Dosage: 110 MG X 2CONTINUED USE OF MEDICINAL PRODUCT
     Route: 065
  5. LIPITOR [Concomitant]
     Active Substance: ATORVASTATIN CALCIUM
     Indication: Hypercholesterolaemia
     Dosage: 80 MG X 1?CONTINUED USE OF MEDICINAL PRODUCT
  6. Folsyre orifarm [Concomitant]
     Indication: Product used for unknown indication
     Dosage: 1 X 1?CONTINUED USE OF MEDICINAL PRODUCT

REACTIONS (2)
  - Drug interaction [Fatal]
  - Brain stem haemorrhage [Fatal]
